FAERS Safety Report 6179193-4 (Version None)
Quarter: 2009Q2

REPORT INFORMATION
  Report Type: 
  Country: None (occurrence: None)
  Receive Date: 20090505
  Receipt Date: 20090428
  Transmission Date: 20091009
  Serious: Yes (Hospitalization, Other)
  Sender: FDA-Public Use
  Company Number: GB-SANOFI-SYNTHELABO-A01200904646

PATIENT
  Age: 65 Year
  Sex: Male
  Weight: 117 kg

DRUGS (5)
  1. CORACTEN XL [Concomitant]
     Indication: HYPERTENSION
     Dosage: UNK
  2. BENDROFLUMETHIAZIDE [Concomitant]
     Indication: HYPERTENSION
     Dosage: UNK
  3. SIMVASTATIN [Concomitant]
     Indication: HYPERCHOLESTEROLAEMIA
     Dosage: UNK
  4. CAPECITABINE [Suspect]
     Indication: COLORECTAL CANCER
     Route: 048
     Dates: start: 20090320, end: 20090410
  5. OXALIPLATIN [Suspect]
     Indication: COLORECTAL CANCER
     Route: 042
     Dates: start: 20090410, end: 20090410

REACTIONS (1)
  - ACUTE MYOCARDIAL INFARCTION [None]
